FAERS Safety Report 10026145 (Version 1)
Quarter: 2014Q1

REPORT INFORMATION
  Report Type: Spontaneous
  Country: US (occurrence: US)
  Receive Date: 20140320
  Receipt Date: 20140320
  Transmission Date: 20141002
  Serious: No
  Sender: FDA-Public Use
  Company Number: US-ALLERGAN-1402965US

PATIENT
  Age: 69 Year
  Sex: Female

DRUGS (11)
  1. LUMIGAN 0.01% [Suspect]
     Indication: EYELID PTOSIS
     Dosage: 1 GTT, QHS
     Route: 047
     Dates: start: 20140205
  2. LUMIGAN 0.01% [Suspect]
     Indication: OCULAR HYPERAEMIA
  3. BRIMONIDINE [Concomitant]
     Indication: GLAUCOMA
     Dosage: 1 GTT, BID
     Route: 047
     Dates: start: 201311
  4. AZOPT [Concomitant]
     Indication: GLAUCOMA
     Dosage: 1 GTT, BID
     Route: 047
     Dates: start: 201311
  5. PHENYLEPHINE HCL [Concomitant]
     Indication: EYELID PTOSIS
     Dosage: 1 GTT, BID
     Route: 047
     Dates: start: 20140205
  6. PHENYLEPHINE HCL [Concomitant]
     Indication: OCULAR HYPERAEMIA
  7. VITAMIN D                          /00107901/ [Concomitant]
     Indication: VITAMIN D DEFICIENCY
     Dosage: 50000 IU, Q WEEK
     Route: 048
  8. CRESTOR [Concomitant]
     Indication: BLOOD CHOLESTEROL INCREASED
     Dosage: 40 MG, QD
     Route: 048
  9. BYSTOLIC [Concomitant]
     Indication: HYPERTENSION
     Dosage: 5 MG, QD
     Route: 048
  10. TRIBENZOR [Concomitant]
     Indication: HYPERTENSION
     Dosage: UNK
     Route: 048
  11. TRIBENZOR [Concomitant]
     Indication: DIURETIC THERAPY

REACTIONS (7)
  - Wheezing [Unknown]
  - Dyspnoea [Unknown]
  - Fatigue [Unknown]
  - Eye disorder [Unknown]
  - Off label use [Unknown]
  - Vision blurred [Unknown]
  - Eye pain [Unknown]
